FAERS Safety Report 4985784-6 (Version None)
Quarter: 2006Q2

REPORT INFORMATION
  Report Type: 
  Country: None (occurrence: None)
  Receive Date: 20060421
  Receipt Date: 20060411
  Transmission Date: 20061013
  Serious: Yes (Other)
  Sender: FDA-Public Use
  Company Number: TCI2005A04321

PATIENT
  Age: 64 Year
  Sex: Female

DRUGS (3)
  1. ACTOS [Suspect]
     Indication: DIABETES MELLITUS
     Dosage: 15 MG (15 MG, 1 D)
     Route: 048
     Dates: start: 20050225, end: 20051013
  2. GLYBURIDE [Concomitant]
  3. BUFFERIN           (ACETYLSALICYLIC ACID, ALUMINIUM GLYCINATE) [Concomitant]
     Route: 048

REACTIONS (2)
  - ACUTE LEUKAEMIA [None]
  - WHITE BLOOD CELL COUNT DECREASED [None]
